FAERS Safety Report 9800941 (Version 6)
Quarter: 2014Q2

REPORT INFORMATION
  Report Type: Report from Study
  Country: US (occurrence: US)
  Receive Date: 20140107
  Receipt Date: 20140623
  Transmission Date: 20141212
  Serious: Yes (Hospitalization)
  Sender: FDA-Public Use
  Company Number: US-JNJFOC-20131217857

PATIENT
  Age: 14 Year
  Sex: Female
  Weight: 48.8 kg

DRUGS (17)
  1. REMICADE [Suspect]
     Indication: CROHN^S DISEASE
     Route: 042
     Dates: start: 20140325
  2. REMICADE [Suspect]
     Indication: CROHN^S DISEASE
     Route: 042
     Dates: start: 20140114
  3. REMICADE [Suspect]
     Indication: CROHN^S DISEASE
     Route: 042
     Dates: start: 20131229
  4. REMICADE [Suspect]
     Indication: CROHN^S DISEASE
     Route: 042
  5. OMEPRAZOLE [Concomitant]
     Route: 065
  6. PREDNISONE [Concomitant]
     Route: 065
  7. 6 MERCAPTOPURINE [Concomitant]
     Route: 065
  8. 6 MERCAPTOPURINE [Concomitant]
     Route: 065
     Dates: start: 20140212
  9. ZOFRAN [Concomitant]
     Route: 065
  10. PRENATAL VITAMINS [Concomitant]
     Route: 065
  11. FOLIC ACID [Concomitant]
     Route: 065
  12. ANTIBIOTICS [Concomitant]
     Indication: INFLAMMATORY BOWEL DISEASE
     Route: 065
  13. MORPHINE [Concomitant]
     Route: 065
  14. HUMIRA [Concomitant]
     Route: 065
  15. HUMIRA [Concomitant]
     Route: 065
     Dates: start: 20131227
  16. FERROUS SULFATE [Concomitant]
     Route: 065
  17. METHOTREXATE [Concomitant]
     Route: 065

REACTIONS (1)
  - Crohn^s disease [Recovered/Resolved]
